FAERS Safety Report 4981965-6 (Version None)
Quarter: 2006Q2

REPORT INFORMATION
  Report Type: 
  Country: None (occurrence: None)
  Receive Date: 20060425
  Receipt Date: 20050829
  Transmission Date: 20061013
  Serious: Yes (Other)
  Sender: FDA-Public Use
  Company Number: US-MERCK-0508USA04818

PATIENT
  Age: 40 Year
  Sex: Female
  Weight: 66 kg

DRUGS (1)
  1. VIOXX [Suspect]
     Indication: ARTHRALGIA
     Route: 048

REACTIONS (8)
  - ANGLE CLOSURE GLAUCOMA [None]
  - ARTHRALGIA [None]
  - BLINDNESS [None]
  - CARPAL TUNNEL SYNDROME [None]
  - CEREBROVASCULAR ACCIDENT [None]
  - EPICONDYLITIS [None]
  - GASTROOESOPHAGEAL REFLUX DISEASE [None]
  - PRESCRIBED OVERDOSE [None]
